FAERS Safety Report 23711752 (Version 1)
Quarter: 2024Q2

REPORT INFORMATION
  Report Type: Spontaneous
  Country: US (occurrence: None)
  Receive Date: 20240404
  Receipt Date: 20240404
  Transmission Date: 20240715
  Serious: Yes (Disabling)
  Sender: FDA-Public Use
  Company Number: None

PATIENT
  Age: 71 Year
  Sex: Male
  Weight: 90 kg

DRUGS (5)
  1. CAMCEVI [Suspect]
     Active Substance: LEUPROLIDE MESYLATE
     Indication: Prostate cancer
  2. IBUPROFEN [Concomitant]
     Active Substance: IBUPROFEN
  3. CALCIUM [Concomitant]
     Active Substance: CALCIUM
  4. NM-6603 [Concomitant]
     Active Substance: NM-6603
  5. PROBIOTICS NOS [Concomitant]
     Active Substance: PROBIOTICS NOS

REACTIONS (7)
  - Fall [None]
  - Asthenia [None]
  - Arthralgia [None]
  - Arthralgia [None]
  - Arthritis [None]
  - Hot flush [None]
  - Night sweats [None]

NARRATIVE: CASE EVENT DATE: 20240112
